FAERS Safety Report 16125057 (Version 1)
Quarter: 2019Q1

REPORT INFORMATION
  Report Type: Spontaneous
  Country: US (occurrence: US)
  Receive Date: 20190327
  Receipt Date: 20190327
  Transmission Date: 20190418
  Serious: Yes (Other)
  Sender: FDA-Public Use
  Company Number: US-PFIZER INC-2018399861

PATIENT
  Age: 3 Year
  Sex: Male

DRUGS (2)
  1. GENOTROPIN [Suspect]
     Active Substance: SOMATROPIN
     Indication: OPTIC ATROPHY
     Dosage: 0.4 MG, DAILY
  2. GENOTROPIN [Suspect]
     Active Substance: SOMATROPIN
     Dosage: 0.5 MG, DAILY

REACTIONS (7)
  - Product use in unapproved indication [Unknown]
  - Optic atrophy [Unknown]
  - Femur fracture [Unknown]
  - Drug ineffective [Unknown]
  - Decreased appetite [Unknown]
  - Cerebral ventricle collapse [Unknown]
  - Craniosynostosis [Unknown]
